FAERS Safety Report 15363406 (Version 1)
Quarter: 2018Q3

REPORT INFORMATION
  Report Type: Report from Study
  Country: US (occurrence: US)
  Receive Date: 20180907
  Receipt Date: 20180907
  Transmission Date: 20181010
  Serious: Yes (Other)
  Sender: FDA-Public Use
  Company Number: US-ACTELION-A-US2017-158617

PATIENT
  Age: 53 Year
  Sex: Male

DRUGS (4)
  1. OPSUMIT [Suspect]
     Active Substance: MACITENTAN
     Indication: PULMONARY ARTERIAL HYPERTENSION
     Dosage: 10 MG, QD
     Route: 048
     Dates: start: 20150701
  2. PHENAZOPYRIDINE. [Concomitant]
     Active Substance: PHENAZOPYRIDINE
  3. APAP CODEINE [Concomitant]
  4. NITROFURANTIN [Concomitant]
     Active Substance: NITROFURANTOIN

REACTIONS (2)
  - Chest pain [Recovered/Resolved]
  - Prostatic operation [Recovered/Resolved]

NARRATIVE: CASE EVENT DATE: 20170708
